FAERS Safety Report 10420656 (Version 1)
Quarter: 2014Q3

REPORT INFORMATION
  Report Type: Spontaneous
  Country: US (occurrence: None)
  Receive Date: 20140829
  Receipt Date: 20140829
  Transmission Date: 20150326
  Serious: No
  Sender: FDA-Public Use
  Company Number: None

PATIENT
  Age: 56 Year
  Sex: Female
  Weight: 63.5 kg

DRUGS (1)
  1. VIIBRYD [Suspect]
     Active Substance: VILAZODONE HYDROCHLORIDE
     Indication: ANXIETY
     Route: 048
     Dates: start: 20140807, end: 20140812

REACTIONS (7)
  - Insomnia [None]
  - Muscle twitching [None]
  - Mania [None]
  - Feeling abnormal [None]
  - Emotional disorder [None]
  - Tachyphrenia [None]
  - Hallucination [None]

NARRATIVE: CASE EVENT DATE: 20140807
